FAERS Safety Report 11391933 (Version 1)
Quarter: 2015Q3

REPORT INFORMATION
  Report Type: Spontaneous
  Country: FR (occurrence: None)
  Receive Date: 20150814
  Receipt Date: 20150814
  Transmission Date: 20151125
  Serious: Yes (Life-Threatening, Hospitalization)
  Sender: FDA-Public Use
  Company Number: CC400266271

PATIENT
  Age: 65 Year
  Weight: 46 kg

DRUGS (12)
  1. LIDOCAINE. [Concomitant]
     Active Substance: LIDOCAINE
  2. MAGNESIUM SULFATE. [Concomitant]
     Active Substance: MAGNESIUM SULFATE
  3. PROPOFOL. [Concomitant]
     Active Substance: PROPOFOL
  4. MARCAIN HEAVY [Concomitant]
     Active Substance: BUPIVACAINE HYDROCHLORIDE
  5. SUCCINYLCHOLINE CHLORIDE. [Concomitant]
     Active Substance: SUCCINYLCHOLINE CHLORIDE
  6. TARGOCID [Concomitant]
     Active Substance: TEICOPLANIN
  7. DIAMORPHINE HYDROCHLORIDE [Concomitant]
     Active Substance: DIACETYLMORPHINE HYDROCHLORIDE
  8. GENTAMICIN. [Concomitant]
     Active Substance: GENTAMICIN
  9. METRONIDAZOLE. [Suspect]
     Active Substance: METRONIDAZOLE
     Dosage: 1 DAY
     Route: 042
     Dates: start: 20150722
  10. DEXAMETHASONE. [Concomitant]
     Active Substance: DEXAMETHASONE
  11. ESMERON [Concomitant]
     Active Substance: ROCURONIUM BROMIDE
  12. FENTANYL. [Concomitant]
     Active Substance: FENTANYL

REACTIONS (1)
  - Anaphylactic reaction [None]

NARRATIVE: CASE EVENT DATE: 20150722
